FAERS Safety Report 8770415 (Version 1)
Quarter: 2012Q4

REPORT INFORMATION
  Report Type: 
  Country: US (occurrence: US)
  Receive Date: 20120830
  Receipt Date: 20120830
  Transmission Date: 20130627
  Serious: Yes (Life-Threatening, Other)
  Sender: FDA-Public Use
  Company Number: US-ELI_LILLY_AND_COMPANY-US201208008651

PATIENT

DRUGS (1)
  1. CYMBALTA [Suspect]

REACTIONS (1)
  - Cardiac arrest [Unknown]
